FAERS Safety Report 8110252-2 (Version None)
Quarter: 2012Q1

REPORT INFORMATION
  Report Type: 
  Country: None (occurrence: None)
  Receive Date: 20120202
  Receipt Date: 20120126
  Transmission Date: 20120608
  Serious: Yes (Other)
  Sender: FDA-Public Use
  Company Number: DE-AMGEN-DEUSP2011061493

PATIENT
  Age: 58 Year
  Sex: Male
  Weight: 99.5 kg

DRUGS (26)
  1. RASILEZ [Concomitant]
     Dosage: 300 MG, QD
  2. MCP HEXAL [Concomitant]
     Dosage: UNK UNK, TID
  3. HUMALOG [Concomitant]
     Dosage: UNK UNK, PRN
  4. GABAPENTIN HEXAL [Concomitant]
     Indication: POLYNEUROPATHY
     Dosage: 100 MG, TID
  5. FOSRENOL [Concomitant]
     Dosage: 750 MG, TID
  6. DELMUNO [Concomitant]
     Indication: BLOOD PRESSURE
     Dosage: UNK UNK, BID
  7. DOXAZOSIN CT ARZNEIMITTEL [Concomitant]
  8. ASS AL [Concomitant]
     Indication: HAEMODILUTION
     Dosage: UNK UNK, QD
  9. PROLIA [Suspect]
     Indication: OSTEOPOROSIS
     Dosage: 60 MG, UNK
     Route: 058
     Dates: start: 20110901
  10. BIFITERAL [Concomitant]
     Dosage: UNK UNK, PRN
  11. PROTAPHANE [Concomitant]
     Dosage: UNK UNK, BID
  12. L THYROXIN HENNING [Concomitant]
     Indication: HYPOTHYROIDISM
     Dosage: 175 MUG, QD
  13. METOPROLOL [Concomitant]
     Dosage: 50 MG, BID
  14. LAXOBERAL [Concomitant]
     Dosage: UNK UNK, PRN
  15. FERRLECIT [Concomitant]
     Dosage: 40 MG, QWK
  16. VITAMIN D [Concomitant]
     Indication: HYPOCALCAEMIA
     Dosage: UNK
  17. VITARENAL [Concomitant]
     Dosage: UNK
  18. NITROLINGUAL PUMPSPRAY [Concomitant]
     Dosage: UNK UNK, PRN
  19. DEKRISTOL [Concomitant]
     Dosage: UNK UNK, QWK
  20. CALCIUM [Concomitant]
  21. SILAPO [Concomitant]
     Dosage: 0.9 ML, 3 TIMES/WK
  22. FENISTIL [Concomitant]
  23. CALCIUMACETAT NEFRO [Concomitant]
     Dosage: 500 MG, TID
  24. ACETAMINOPHEN [Concomitant]
     Dosage: 500 MG, PRN
  25. BONDIOL [Concomitant]
     Dosage: UNK UNK, BID
  26. NOVAMINSULFON CT [Concomitant]
     Dosage: UNK UNK, PRN

REACTIONS (2)
  - HYPOCALCAEMIA [None]
  - BLOOD PARATHYROID HORMONE INCREASED [None]
